FAERS Safety Report 8729143 (Version 2)
Quarter: 2014Q4

REPORT INFORMATION
  Report Type: Spontaneous
  Country: US (occurrence: US)
  Receive Date: 20120817
  Receipt Date: 20141205
  Transmission Date: 20150529
  Serious: Yes (Other)
  Sender: FDA-Public Use
  Company Number: US-BRISTOL-MYERS SQUIBB COMPANY-16514390

PATIENT
  Age: 39 Year
  Sex: Female

DRUGS (4)
  1. VICODIN [Concomitant]
     Active Substance: ACETAMINOPHEN\HYDROCODONE BITARTRATE
  2. FLEXERIL [Concomitant]
     Active Substance: CYCLOBENZAPRINE HYDROCHLORIDE
  3. SPRYCEL [Suspect]
     Active Substance: DASATINIB
     Dosage: FEB11-UNK,RESTARTED ON MAR12.?DOSE REDUCED-TAB CUTTING TO HALF?20MG: 2009-CONT
     Dates: start: 2009
  4. ZOFRAN [Concomitant]
     Active Substance: ONDANSETRON HYDROCHLORIDE

REACTIONS (6)
  - Nausea [Unknown]
  - Headache [Unknown]
  - Wrong technique in drug usage process [Unknown]
  - Rash [Unknown]
  - Pain [Unknown]
  - Pulmonary oedema [Unknown]
